FAERS Safety Report 14190699 (Version 1)
Quarter: 2017Q4

REPORT INFORMATION
  Report Type: Spontaneous
  Country: US (occurrence: US)
  Receive Date: 20171115
  Receipt Date: 20171115
  Transmission Date: 20180321
  Serious: Yes (Hospitalization)
  Sender: FDA-Public Use
  Company Number: US-INCYTE CORPORATION-2017IN009617

PATIENT

DRUGS (2)
  1. JAKAFI [Suspect]
     Active Substance: RUXOLITINIB
     Indication: MYELOFIBROSIS
     Dosage: 10 MG, BID
     Route: 048
     Dates: start: 2013
  2. JAKAFI [Suspect]
     Active Substance: RUXOLITINIB
     Dosage: DECREASED DOSE

REACTIONS (4)
  - Psychomotor hyperactivity [Unknown]
  - Drug ineffective [Unknown]
  - Mania [Unknown]
  - Iatrogenic injury [Unknown]

NARRATIVE: CASE EVENT DATE: 2015
